FAERS Safety Report 6196272-6 (Version None)
Quarter: 2009Q2

REPORT INFORMATION
  Report Type: 
  Country: None (occurrence: None)
  Receive Date: 20090520
  Receipt Date: 20071120
  Transmission Date: 20091009
  Serious: Yes (Hospitalization, Other)
  Sender: FDA-Public Use
  Company Number: US-ASTRAZENECA-2006UW22663

PATIENT
  Age: 13008 Day
  Sex: Male
  Weight: 76.2 kg

DRUGS (18)
  1. SEROQUEL [Suspect]
     Indication: STRESS
     Dosage: 25 MG AND UP
     Route: 048
     Dates: start: 20030101
  2. SEROQUEL [Suspect]
     Indication: SCHIZOPHRENIA
     Dosage: 25 MG AND UP
     Route: 048
     Dates: start: 20030101
  3. SEROQUEL [Suspect]
     Indication: DEPRESSION
     Dosage: 25 MG AND UP
     Route: 048
     Dates: start: 20030101
  4. SEROQUEL [Suspect]
     Dosage: 25-300MG
     Route: 048
     Dates: start: 20040122
  5. SEROQUEL [Suspect]
     Dosage: 25-300MG
     Route: 048
     Dates: start: 20040122
  6. SEROQUEL [Suspect]
     Dosage: 25-300MG
     Route: 048
     Dates: start: 20040122
  7. PAXIL [Concomitant]
     Route: 065
  8. HYDROXYZINE [Concomitant]
     Route: 065
  9. LEVAQUIN [Concomitant]
     Route: 065
  10. LOMOTIL [Concomitant]
     Route: 065
  11. ALPRAZOLAM [Concomitant]
     Route: 065
  12. DOXYCYCLINE [Concomitant]
     Route: 065
  13. AMBIEN [Concomitant]
     Route: 065
  14. AMANTADINE HCL [Concomitant]
     Route: 065
  15. KENALOG [Concomitant]
     Route: 065
  16. ATIVAN [Concomitant]
     Route: 065
  17. HYOSCYAMINE [Concomitant]
     Route: 065
  18. RANITIDINE [Concomitant]
     Route: 065

REACTIONS (23)
  - ABDOMINAL PAIN LOWER [None]
  - ADJUSTMENT DISORDER WITH ANXIETY [None]
  - ARTHRALGIA [None]
  - BIPOLAR DISORDER [None]
  - COSTOCHONDRITIS [None]
  - DEPRESSION [None]
  - DIABETES MELLITUS [None]
  - EAR PAIN [None]
  - HEADACHE [None]
  - HYPERSENSITIVITY [None]
  - HYPOKALAEMIA [None]
  - MAJOR DEPRESSION [None]
  - MANIA [None]
  - MIGRAINE [None]
  - MUSCLE SPASMS [None]
  - OROPHARYNGEAL PAIN [None]
  - PSYCHOTIC DISORDER [None]
  - RHINITIS ALLERGIC [None]
  - ROAD TRAFFIC ACCIDENT [None]
  - SCHIZOPHRENIA [None]
  - STRESS [None]
  - SUICIDAL IDEATION [None]
  - VASOMOTOR RHINITIS [None]
